FAERS Safety Report 21830741 (Version 2)
Quarter: 2023Q1

REPORT INFORMATION
  Report Type: Report from Study
  Country: US (occurrence: US)
  Receive Date: 20230106
  Receipt Date: 20230208
  Transmission Date: 20230417
  Serious: No
  Sender: FDA-Public Use
  Company Number: US-002147023-NVSC2023US002835

PATIENT
  Sex: Female

DRUGS (1)
  1. KISQALI [Suspect]
     Active Substance: RIBOCICLIB
     Indication: Product used for unknown indication
     Dosage: UNK (START DATE: 26 DEC)
     Route: 065

REACTIONS (4)
  - Flatulence [Unknown]
  - Eructation [Unknown]
  - Pruritus [Unknown]
  - Constipation [Unknown]
